FAERS Safety Report 5763298-3 (Version None)
Quarter: 2008Q2

REPORT INFORMATION
  Report Type: 
  Country: None (occurrence: None)
  Receive Date: 20080604
  Receipt Date: 20080604
  Transmission Date: 20081010
  Serious: Yes (Other)
  Sender: FDA-Public Use
  Company Number: None

PATIENT
  Sex: Male
  Weight: 29.4838 kg

DRUGS (1)
  1. SINGULAIR [Suspect]
     Indication: ASTHMA
     Dosage: DAILY
     Dates: start: 20071001, end: 20080301

REACTIONS (6)
  - ABNORMAL BEHAVIOUR [None]
  - AGGRESSION [None]
  - APATHY [None]
  - DISTURBANCE IN SOCIAL BEHAVIOUR [None]
  - IRRITABILITY [None]
  - PSYCHIATRIC SYMPTOM [None]
